FAERS Safety Report 8055844-4 (Version None)
Quarter: 2012Q1

REPORT INFORMATION
  Report Type: 
  Country: None (occurrence: None)
  Receive Date: 20120119
  Receipt Date: 20120119
  Transmission Date: 20120608
  Serious: Yes (Other)
  Sender: FDA-Public Use
  Company Number: None

PATIENT
  Age: 53 Year
  Sex: Male
  Weight: 163.29 kg

DRUGS (1)
  1. CLINDAMYCIN [Suspect]
     Indication: STAPHYLOCOCCAL INFECTION
     Dosage: 1 PILL
     Route: 048
     Dates: start: 20110501, end: 20110501

REACTIONS (1)
  - DRUG HYPERSENSITIVITY [None]
